FAERS Safety Report 22339302 (Version 1)
Quarter: 2023Q2

REPORT INFORMATION
  Report Type: Spontaneous
  Country: US (occurrence: US)
  Receive Date: 20230518
  Receipt Date: 20230518
  Transmission Date: 20230722
  Serious: No
  Sender: FDA-Public Use
  Company Number: US-GSK-US2023AMR066497

PATIENT

DRUGS (1)
  1. BELIMUMAB [Suspect]
     Active Substance: BELIMUMAB
     Indication: Product used for unknown indication
     Dosage: 10 MG/KG, WE (AT DAYS 0,14 AND 28), LOADING DOSE (LD)
     Route: 042

REACTIONS (3)
  - Arthralgia [Unknown]
  - Fatigue [Unknown]
  - Therapeutic response shortened [Unknown]
